FAERS Safety Report 6329279-6 (Version None)
Quarter: 2009Q3

REPORT INFORMATION
  Report Type: 
  Country: None (occurrence: None)
  Receive Date: 20090826
  Receipt Date: 20090818
  Transmission Date: 20100115
  Serious: Yes (Other)
  Sender: FDA-Public Use
  Company Number: JP-PFIZER INC-2009257308

PATIENT
  Age: 28 Year

DRUGS (2)
  1. AZULFIDINE [Suspect]
     Indication: RHEUMATOID ARTHRITIS
     Route: 048
  2. METHOTREXATE SODIUM [Suspect]

REACTIONS (1)
  - PNEUMONIA CRYPTOCOCCAL [None]
